FAERS Safety Report 5153590-8 (Version None)
Quarter: 2006Q4

REPORT INFORMATION
  Report Type: 
  Country: None (occurrence: None)
  Receive Date: 20061113
  Receipt Date: 20061020
  Transmission Date: 20070319
  Serious: Yes (Hospitalization)
  Sender: FDA-Public Use
  Company Number: 231863

PATIENT
  Age: 51 Year
  Sex: Male

DRUGS (2)
  1. RSHAPO2L-TRAIL [Suspect]
     Indication: NON-SMALL CELL LUNG CANCER
  2. AVASTIN [Suspect]
     Indication: NON-SMALL CELL LUNG CANCER
     Dosage: 645 MG, INTRAVENOUS
     Route: 042
     Dates: start: 20060801, end: 20061009

REACTIONS (1)
  - ANAEMIA [None]
